FAERS Safety Report 7186078-3 (Version None)
Quarter: 2010Q4

REPORT INFORMATION
  Report Type: 
  Country: None (occurrence: None)
  Receive Date: 20101222
  Receipt Date: 20100614
  Transmission Date: 20110411
  Serious: No
  Sender: FDA-Public Use
  Company Number: US-AMGEN-TCS413583

PATIENT

DRUGS (6)
  1. ENBREL [Suspect]
     Indication: PSORIASIS
     Dosage: 25 MG, 2 TIMES/WK
     Route: 058
     Dates: start: 20100301, end: 20100401
  2. RANITIDINE HYDROCHLORIDE [Concomitant]
     Dosage: 300 MG, UNK
  3. ESCITALOPRAM OXALATE [Concomitant]
     Dosage: 5 MG, UNK
  4. LOVAZA [Concomitant]
     Dosage: UNK UNK, UNK
  5. SULFACETAMIDE SODIUM [Concomitant]
  6. METRONIDAZOLE [Concomitant]
     Dosage: .75 %, UNK

REACTIONS (3)
  - EAR PAIN [None]
  - LYMPHADENOPATHY [None]
  - NECK PAIN [None]
